FAERS Safety Report 5752124-4 (Version None)
Quarter: 2008Q2

REPORT INFORMATION
  Report Type: 
  Country: None (occurrence: None)
  Receive Date: 20080529
  Receipt Date: 20070621
  Transmission Date: 20081010
  Serious: No
  Sender: FDA-Public Use
  Company Number: US-BAUSCH-2007BL002065

PATIENT
  Age: 26 Year
  Sex: Male

DRUGS (3)
  1. BRIMONIDINE TARTRATE [Suspect]
     Indication: DRUG USE FOR UNKNOWN INDICATION
     Route: 047
     Dates: start: 20070523
  2. TRAZODONE HCL [Concomitant]
     Dates: start: 20050101
  3. VISTARIL [Concomitant]
     Dates: end: 20070625

REACTIONS (5)
  - EPISTAXIS [None]
  - EYELID MARGIN CRUSTING [None]
  - HEADACHE [None]
  - NASAL DRYNESS [None]
  - VISION BLURRED [None]
